FAERS Safety Report 25975301 (Version 1)
Quarter: 2025Q4

REPORT INFORMATION
  Report Type: Spontaneous
  Country: EU (occurrence: EU)
  Receive Date: 20251029
  Receipt Date: 20251029
  Transmission Date: 20260118
  Serious: Yes (Death)
  Sender: VERTEX
  Company Number: EU-VERTEX PHARMACEUTICALS-2025-017977

PATIENT
  Age: 76 Year
  Sex: Male
  Weight: 71 kg

DRUGS (2)
  1. ELEXACAFTOR\IVACAFTOR\TEZACAFTOR [Suspect]
     Active Substance: ELEXACAFTOR\IVACAFTOR\TEZACAFTOR
     Indication: Cystic fibrosis
     Dosage: DAILY
     Route: 048
     Dates: start: 20230531, end: 20250831
  2. KALYDECO [Suspect]
     Active Substance: IVACAFTOR
     Indication: Cystic fibrosis
     Dosage: DAILY
     Route: 048
     Dates: start: 20230531, end: 20250831

REACTIONS (1)
  - Death [Fatal]

NARRATIVE: CASE EVENT DATE: 20250831
